FAERS Safety Report 7099722-6 (Version None)
Quarter: 2010Q4

REPORT INFORMATION
  Report Type: 
  Country: None (occurrence: None)
  Receive Date: 20101104
  Receipt Date: 20101021
  Transmission Date: 20110411
  Serious: Yes (Hospitalization, Other)
  Sender: FDA-Public Use
  Company Number: ACO_02887_2010

PATIENT
  Sex: Male

DRUGS (11)
  1. AMPYRA [Suspect]
     Indication: PRODUCT USED FOR UNKNOWN INDICATION
     Dosage: (DF)
     Dates: start: 20100401, end: 20101001
  2. WELLBUTRIN [Concomitant]
  3. TYSABRI [Concomitant]
  4. AMANTADINE [Concomitant]
  5. BACLOFEN [Concomitant]
  6. ZOLPIDEM [Concomitant]
  7. CYMBALTA [Concomitant]
  8. PROPRANOLOL [Concomitant]
  9. LYRICA [Concomitant]
  10. OMEPRAZOLE [Concomitant]
  11. ROPINIROLE [Concomitant]

REACTIONS (3)
  - ALCOHOL USE [None]
  - CONVULSION [None]
  - REFUSAL OF TREATMENT BY PATIENT [None]
